FAERS Safety Report 13770393 (Version 3)
Quarter: 2018Q1

REPORT INFORMATION
  Report Type: Spontaneous
  Country: US (occurrence: US)
  Receive Date: 20170719
  Receipt Date: 20180223
  Transmission Date: 20180508
  Serious: Yes (Other)
  Sender: FDA-Public Use
  Company Number: US-VIFOR (INTERNATIONAL) INC.-VIT-2017-00631

PATIENT
  Sex: Male
  Weight: 82.5 kg

DRUGS (10)
  1. LISINOPRIL. [Suspect]
     Active Substance: LISINOPRIL
  2. RENVELA [Concomitant]
     Active Substance: SEVELAMER CARBONATE
  3. SOMA [Concomitant]
     Active Substance: CARISOPRODOL
  4. COREG [Concomitant]
     Active Substance: CARVEDILOL
  5. LASIX [Suspect]
     Active Substance: FUROSEMIDE
  6. FLOMAX [Concomitant]
     Active Substance: TAMSULOSIN HYDROCHLORIDE
  7. LANTUS [Concomitant]
     Active Substance: INSULIN GLARGINE
  8. ATIVAN [Concomitant]
     Active Substance: LORAZEPAM
  9. VELTASSA [Suspect]
     Active Substance: PATIROMER
     Indication: HYPERKALAEMIA
     Route: 048
     Dates: start: 20160831, end: 201701
  10. NORVASC [Concomitant]
     Active Substance: AMLODIPINE BESYLATE

REACTIONS (1)
  - Renal impairment [Unknown]
